FAERS Safety Report 8579109 (Version 2)
Quarter: 2013Q1

REPORT INFORMATION
  Report Type: Spontaneous
  Country: GB (occurrence: GB)
  Receive Date: 20120524
  Receipt Date: 20130228
  Transmission Date: 20140127
  Serious: Yes (Death, Other)
  Sender: FDA-Public Use
  Company Number: GB-ROCHE-1068095

PATIENT
  Sex: Male

DRUGS (3)
  1. ISOTRETINOIN [Suspect]
     Indication: ACNE
     Route: 048
     Dates: start: 201005
  2. PARACETAMOL [Suspect]
     Indication: PRODUCT USED FOR UNKNOWN INDICATION
     Dosage: 2 TABLETS
     Route: 065
  3. CHLORPHENAMINE [Suspect]
     Indication: PRODUCT USED FOR UNKNOWN INDICATION
     Dosage: 21 TABLETS
     Route: 065

REACTIONS (15)
  - Completed suicide [Fatal]
  - Suicidal ideation [Unknown]
  - Personality change [Unknown]
  - Suicide attempt [Recovered/Resolved]
  - Overdose [Unknown]
  - Gastric infection [Unknown]
  - Dry skin [Unknown]
  - Lip dry [Unknown]
  - Scar [Unknown]
  - Erythema [Unknown]
  - Oropharyngeal pain [Unknown]
  - Localised infection [Unknown]
  - Ingrowing nail [Unknown]
  - Pain in extremity [Unknown]
  - Erythema [Unknown]
